FAERS Safety Report 4405130-6 (Version None)
Quarter: 2004Q3

REPORT INFORMATION
  Report Type: 
  Country: None (occurrence: None)
  Receive Date: 20040719
  Receipt Date: 20040702
  Transmission Date: 20050211
  Serious: Yes (Other)
  Sender: FDA-Public Use
  Company Number: 174589

PATIENT
  Age: 36 Year
  Sex: Female
  Weight: 80.7403 kg

DRUGS (9)
  1. AVONEX [Suspect]
     Indication: MULTIPLE SCLEROSIS
     Dosage: 30 MCG QW IM
     Route: 030
     Dates: start: 19991201, end: 20000901
  2. AVONEX [Suspect]
     Indication: MULTIPLE SCLEROSIS
     Dosage: 30 MCG QW IM
     Route: 030
     Dates: start: 20010601, end: 20030901
  3. AVONEX [Suspect]
     Indication: MULTIPLE SCLEROSIS
     Dosage: 30 MCG QW IM
     Route: 030
     Dates: start: 20031001
  4. PREVACID [Concomitant]
  5. ZYRTEC [Concomitant]
  6. LEVOXYL [Concomitant]
  7. DIGOXIN [Concomitant]
  8. ASPIRIN [Concomitant]
  9. ALBUTEROL [Concomitant]

REACTIONS (11)
  - ATRIAL FIBRILLATION [None]
  - BACK PAIN [None]
  - DYSMENORRHOEA [None]
  - ECZEMA [None]
  - HEPATOMEGALY [None]
  - INFECTIOUS MONONUCLEOSIS [None]
  - NARCOLEPSY [None]
  - NEPHROLITHIASIS [None]
  - PHOBIA [None]
  - PREGNANCY [None]
  - WEIGHT INCREASED [None]
